FAERS Safety Report 5149339-5 (Version None)
Quarter: 2006Q4

REPORT INFORMATION
  Report Type: 
  Country: None (occurrence: None)
  Receive Date: 20061113
  Receipt Date: 20051109
  Transmission Date: 20070319
  Serious: No
  Sender: FDA-Public Use
  Company Number: 2005PV000624

PATIENT
  Age: 50 Year
  Sex: Female
  Weight: 110.5 kg

DRUGS (24)
  1. COREG [Suspect]
     Indication: BLOOD PRESSURE
     Dosage: 6.25MG TWICE PER DAY
     Route: 048
     Dates: start: 20050722
  2. BYETTA [Suspect]
     Dosage: 5MCG TWICE PER DAY
     Route: 058
     Dates: start: 20050722
  3. METFORMIN [Concomitant]
     Route: 065
  4. AMARYL [Concomitant]
     Route: 065
  5. AVANDIA [Concomitant]
     Route: 065
  6. LOZOL [Concomitant]
     Route: 065
  7. AVAPRO [Concomitant]
     Route: 065
  8. ZETIA [Concomitant]
     Route: 065
  9. K-DUR 10 [Concomitant]
     Route: 065
  10. ASPIRIN [Concomitant]
     Route: 065
  11. CLARITIN [Concomitant]
     Route: 065
  12. PRILOSEC [Concomitant]
     Route: 065
  13. IMDUR [Concomitant]
     Route: 065
  14. FLAXSEED OIL [Concomitant]
     Route: 048
  15. FISH OIL [Concomitant]
     Route: 048
  16. NIACIN [Concomitant]
     Route: 065
  17. ASCORBIC ACID [Concomitant]
     Route: 065
  18. CRANBERRY [Concomitant]
     Route: 065
  19. EVENING PRIMROSE OIL [Concomitant]
     Route: 065
  20. VITAMIN B COMPLEX CAP [Concomitant]
     Route: 065
  21. SOY [Concomitant]
     Route: 065
  22. BILBERRY [Concomitant]
     Route: 065
  23. VITAMIN E [Concomitant]
     Route: 065
  24. MELATONIN [Concomitant]
     Route: 065

REACTIONS (5)
  - BLOOD GLUCOSE DECREASED [None]
  - BLOOD GLUCOSE INCREASED [None]
  - DIZZINESS [None]
  - HEADACHE [None]
  - PRURITUS [None]
